FAERS Safety Report 6493381-9 (Version None)
Quarter: 2009Q4

REPORT INFORMATION
  Report Type: 
  Country: None (occurrence: None)
  Receive Date: 20091214
  Receipt Date: 20091208
  Transmission Date: 20100525
  Serious: Yes (Other)
  Sender: FDA-Public Use
  Company Number: CHPA2009US22870

PATIENT
  Age: 80 Year
  Sex: Female
  Weight: 56.689 kg

DRUGS (3)
  1. VOLTAREN [Suspect]
     Dosage: UNK, TID
     Route: 061
     Dates: start: 20091120, end: 20091126
  2. INSULIN [Concomitant]
     Indication: TYPE 1 DIABETES MELLITUS
  3. VITAMIN E [Concomitant]

REACTIONS (8)
  - APPLICATION SITE PAIN [None]
  - APPLICATION SITE PRURITUS [None]
  - BLOOD GLUCOSE INCREASED [None]
  - CONCOMITANT DISEASE AGGRAVATED [None]
  - FEELING ABNORMAL [None]
  - HYPERSENSITIVITY [None]
  - OFF LABEL USE [None]
  - WRONG TECHNIQUE IN DRUG USAGE PROCESS [None]
